FAERS Safety Report 13904265 (Version 1)
Quarter: 2017Q3

REPORT INFORMATION
  Report Type: Spontaneous
  Country: FR (occurrence: FR)
  Receive Date: 20170825
  Receipt Date: 20170825
  Transmission Date: 20171127
  Serious: Yes (Disabling)
  Sender: FDA-Public Use
  Company Number: FR-CONCORDIA PHARMACEUTICALS INC.-GSH201708-004789

PATIENT
  Age: 64 Year
  Sex: Female

DRUGS (2)
  1. SULFARLEM [Concomitant]
     Active Substance: ANETHOLTRITHION
     Dates: start: 200902
  2. PLAQUENIL [Suspect]
     Active Substance: HYDROXYCHLOROQUINE SULFATE
     Indication: SJOGREN^S SYNDROME
     Route: 048
     Dates: start: 200902, end: 201706

REACTIONS (4)
  - Chest pain [Not Recovered/Not Resolved]
  - Cardiomyopathy [Not Recovered/Not Resolved]
  - Dyspnoea exertional [Recovering/Resolving]
  - Chest discomfort [Not Recovered/Not Resolved]

NARRATIVE: CASE EVENT DATE: 201704
